FAERS Safety Report 5982967-3 (Version None)
Quarter: 2008Q4

REPORT INFORMATION
  Report Type: 
  Country: None (occurrence: None)
  Receive Date: 20081125
  Receipt Date: 20080729
  Transmission Date: 20090506
  Serious: Yes (Hospitalization)
  Sender: FDA-Public Use
  Company Number: E7867-00002-SPO-US

PATIENT
  Sex: Male

DRUGS (1)
  1. GLIADEL [Suspect]
     Dosage: INTRACEREBRAL
     Route: 018

REACTIONS (1)
  - INFECTION [None]
